FAERS Safety Report 13550922 (Version 6)
Quarter: 2019Q3

REPORT INFORMATION
  Report Type: Spontaneous
  Country: CA (occurrence: CA)
  Receive Date: 20170516
  Receipt Date: 20190729
  Transmission Date: 20191004
  Serious: Yes (Hospitalization, Disabling, Other)
  Sender: FDA-Public Use
  Company Number: CA-PFIZER INC-2017140139

PATIENT
  Age: 57 Year
  Sex: Male

DRUGS (29)
  1. AMIKACIN SULFATE. [Interacting]
     Active Substance: AMIKACIN SULFATE
     Indication: MYCOBACTERIUM ABSCESSUS INFECTION
     Dosage: 900 MG, 1X/DAY, (10MG/KG FOR A 90 KG PATIENT)
     Route: 042
     Dates: start: 20140707
  2. ETHAMBUTOL [Interacting]
     Active Substance: ETHAMBUTOL HYDROCHLORIDE
     Indication: MYCOBACTERIAL INFECTION
     Dosage: 500 MG, UNK
     Route: 042
  3. PIPERACILLIN/TAZOBACTAM [Interacting]
     Active Substance: PIPERACILLIN SODIUM\TAZOBACTAM SODIUM
     Indication: NONINFECTIVE SIALOADENITIS
     Dosage: 4.5 G, 3X/DAY (1 EVERY 8 HOURS)
     Route: 042
     Dates: start: 20140605, end: 20140609
  4. VANCOMYCIN HCL [Interacting]
     Active Substance: VANCOMYCIN HYDROCHLORIDE
     Indication: BACTERIAL INFECTION
     Dosage: 1.25 G, 2X/DAY
     Route: 042
     Dates: end: 20140610
  5. VANCOMYCIN HCL [Interacting]
     Active Substance: VANCOMYCIN HYDROCHLORIDE
     Indication: CONDITION AGGRAVATED
  6. WARFARIN [Interacting]
     Active Substance: WARFARIN
     Indication: ANTICOAGULANT THERAPY
  7. RIFAMPIN. [Interacting]
     Active Substance: RIFAMPIN
     Indication: TUBERCULOSIS
     Dosage: UNK
  8. RIFAMPIN. [Interacting]
     Active Substance: RIFAMPIN
     Indication: MYCOBACTERIAL INFECTION
  9. VANCOMYCIN HCL [Interacting]
     Active Substance: VANCOMYCIN HYDROCHLORIDE
     Indication: ABSCESS NECK
  10. CLARITHROMYCIN. [Interacting]
     Active Substance: CLARITHROMYCIN
     Indication: MYCOBACTERIAL INFECTION
  11. IMIPENEM [Interacting]
     Active Substance: IMIPENEM
     Indication: MYCOBACTERIUM ABSCESSUS INFECTION
     Dosage: 500 MG, 4X/DAY, (1 EVERY 6 HOURS)
     Route: 042
     Dates: start: 20140707
  12. MEROPENEM. [Suspect]
     Active Substance: MEROPENEM
     Indication: BACTERIAL INFECTION
     Dosage: 1 G, 3X/DAY (EVERY 8 HOURS)
     Route: 042
  13. ETHAMBUTOL [Interacting]
     Active Substance: ETHAMBUTOL HYDROCHLORIDE
     Indication: TUBERCULOSIS
     Dosage: UNK
  14. PENICILLIN [Interacting]
     Active Substance: PENICILLIN
     Indication: ANTIBIOTIC PROPHYLAXIS
  15. PENICILLIN [Interacting]
     Active Substance: PENICILLIN
     Indication: DENTAL OPERATION
     Dosage: UNK, (SEVEN-DAY COURSE)
     Route: 048
  16. PYRAZINAMIDE. [Interacting]
     Active Substance: PYRAZINAMIDE
     Indication: TUBERCULOSIS
  17. PIPERACILLIN/TAZOBACTAM [Interacting]
     Active Substance: PIPERACILLIN SODIUM\TAZOBACTAM SODIUM
     Indication: ABSCESS NECK
  18. CLARITHROMYCIN. [Interacting]
     Active Substance: CLARITHROMYCIN
     Indication: MYCOBACTERIUM ABSCESSUS INFECTION
     Dosage: 500 MG, 2X/DAY
     Route: 048
     Dates: start: 20140717
  19. WARFARIN [Interacting]
     Active Substance: WARFARIN
     Indication: PERIPHERAL VASCULAR DISORDER
     Dosage: UNK
     Route: 048
  20. CILASTATIN/IMIPEN [Interacting]
     Active Substance: CILASTATIN SODIUM\IMIPENEM
     Indication: MYCOBACTERIUM ABSCESSUS INFECTION
     Dosage: 500 MG, 3X/DAY (EVERY 8 HOURS)
     Route: 042
  21. ISONIAZID. [Concomitant]
     Active Substance: ISONIAZID
     Indication: MYCOBACTERIAL INFECTION
  22. MEROPENEM. [Interacting]
     Active Substance: MEROPENEM
     Indication: ABSCESS NECK
  23. IMIPENEM [Interacting]
     Active Substance: IMIPENEM
     Indication: MYCOBACTERIAL INFECTION
  24. MEROPENEM. [Interacting]
     Active Substance: MEROPENEM
     Indication: CONDITION AGGRAVATED
  25. AMIKACIN SULFATE. [Interacting]
     Active Substance: AMIKACIN SULFATE
     Indication: MYCOBACTERIAL INFECTION
  26. PYRAZINAMIDE. [Interacting]
     Active Substance: PYRAZINAMIDE
     Indication: MYCOBACTERIAL INFECTION
     Dosage: UNK
  27. RIFAMPIN. [Interacting]
     Active Substance: RIFAMPIN
     Indication: TUBERCULOSIS
  28. ISONIAZID. [Concomitant]
     Active Substance: ISONIAZID
     Indication: TUBERCULOSIS
     Dosage: UNK
  29. TAZOBACTAM [Concomitant]
     Active Substance: TAZOBACTAM
     Indication: ABSCESS NECK
     Dosage: 4.5 G, 3X/DAY (ONE EVERY 8 HOUR)
     Route: 042

REACTIONS (9)
  - Drug interaction [Recovered/Resolved]
  - Ototoxicity [Recovered/Resolved]
  - Gastrointestinal haemorrhage [Recovered/Resolved]
  - Labelled drug-drug interaction medication error [Recovering/Resolving]
  - Drug ineffective [Recovering/Resolving]
  - Anticoagulation drug level above therapeutic [Unknown]
  - Potentiating drug interaction [Recovered/Resolved]
  - Condition aggravated [Recovering/Resolving]
  - International normalised ratio increased [Recovered/Resolved]

NARRATIVE: CASE EVENT DATE: 20140727
